FAERS Safety Report 6815296-6 (Version None)
Quarter: 2010Q3

REPORT INFORMATION
  Report Type: 
  Country: None (occurrence: None)
  Receive Date: 20100702
  Receipt Date: 20100629
  Transmission Date: 20110219
  Serious: Yes (Hospitalization)
  Sender: FDA-Public Use
  Company Number: DE-BRISTOL-MYERS SQUIBB COMPANY-15140247

PATIENT
  Age: 74 Year
  Sex: Female
  Weight: 86 kg

DRUGS (9)
  1. CISPLATIN [Suspect]
     Indication: NON-SMALL CELL LUNG CANCER
     Dosage: RESTARTED ON 08JUN10
     Route: 042
     Dates: start: 20100518
  2. GEMCITABINE HCL [Suspect]
     Indication: NON-SMALL CELL LUNG CANCER
     Dosage: RESTARTED ON 08JUN-10 TO UNK.
     Route: 042
     Dates: start: 20100518
  3. ENALAPRIL MALEATE [Concomitant]
     Dosage: 1 DF = 10 UNIT NOT MENTIONED.
  4. BISOPROLOL FUMARATE [Concomitant]
     Dosage: 1 DF = 2.5 UNIT NOT MENTIONED.
  5. SANDOCAL [Concomitant]
  6. ONDANSETRON [Concomitant]
     Dosage: 1 DF = 8 UNIT NOT MENTIONED.
  7. ASPIRIN [Concomitant]
     Dosage: 1 DF = 100 UNIT NOT MENTIONED.
  8. HYDROCHLOROTHIAZIDE [Concomitant]
     Dosage: 1 DF =25 UNIT NOT MENTIONED.
  9. PASPERTIN [Concomitant]
     Dosage: 1 DF = 20 UNIT NOT MENTIONED.

REACTIONS (1)
  - SYNCOPE [None]
